FAERS Safety Report 22314730 (Version 1)
Quarter: 2023Q2

REPORT INFORMATION
  Report Type: Spontaneous
  Country: US (occurrence: None)
  Receive Date: 20230512
  Receipt Date: 20230512
  Transmission Date: 20230721
  Serious: Yes (unspecified)
  Sender: FDA-Public Use
  Company Number: None

PATIENT
  Age: 47 Year
  Sex: Male
  Weight: 90.72 kg

DRUGS (14)
  1. ARTIFICIAL TEARS LUBRICANT EYE DROPS (CARBOXYMETHYLCELLULOSE SODIUM) [Suspect]
     Active Substance: CARBOXYMETHYLCELLULOSE SODIUM
     Indication: Dry eye
     Dosage: FREQUENCY : 3 TIMES A DAY;?
     Dates: start: 20220722, end: 202303
  2. THROAT LOZENGES MENTHOL [Concomitant]
  3. MINERAL OIL [Concomitant]
     Active Substance: MINERAL OIL
  4. KETOCONAZOLE [Concomitant]
     Active Substance: KETOCONAZOLE
  5. ALBUTEROL [Concomitant]
     Active Substance: ALBUTEROL
  6. CALCIUM ANTACID [Concomitant]
     Active Substance: CALCIUM CARBONATE
  7. ACETAMINOPHEN [Concomitant]
     Active Substance: ACETAMINOPHEN
  8. LISINOPRIL [Concomitant]
     Active Substance: LISINOPRIL
  9. AMLODIPINE BESYLATE [Concomitant]
     Active Substance: AMLODIPINE BESYLATE
  10. CETIRIZINE HYDROCHLORIDE [Concomitant]
     Active Substance: CETIRIZINE HYDROCHLORIDE
  11. LEVOTHYROXINE [Concomitant]
     Active Substance: LEVOTHYROXINE
  12. GUAIFENESIN [Concomitant]
     Active Substance: GUAIFENESIN
  13. VITAMIN D3 [Concomitant]
     Active Substance: CHOLECALCIFEROL
  14. METOPROLOL TARTRATE [Concomitant]
     Active Substance: METOPROLOL TARTRATE

REACTIONS (4)
  - Vision blurred [None]
  - Eye pain [None]
  - Recalled product administered [None]
  - Lacrimation increased [None]

NARRATIVE: CASE EVENT DATE: 20230120
